FAERS Safety Report 10625089 (Version 1)
Quarter: 2014Q4

REPORT INFORMATION
  Report Type: Spontaneous
  Country: DE (occurrence: None)
  Receive Date: 20141202
  Receipt Date: 20141202
  Transmission Date: 20150529
  Serious: Yes (Congenital Anomaly)
  Sender: FDA-Public Use
  Company Number: DE2014026287

PATIENT
  Age: 1 Day
  Sex: Male
  Weight: 3.45 kg

DRUGS (6)
  1. ESTRADIOL. [Concomitant]
     Active Substance: ESTRADIOL
  2. UTROGEST (PROGESTERONE) [Concomitant]
  3. PAROXETIN (PAROXETINE HYDROCHLORIDE) UNKNOWN [Suspect]
     Active Substance: PAROXETINE HYDROCHLORIDE
     Indication: PANIC DISORDER
     Dosage: 20 [MG/D]
     Route: 064
     Dates: start: 20130806, end: 20140426
  4. AGYRAX (MECLOZINE HYDROCHLORIDE) [Concomitant]
  5. SYMBICORT (BUDESONIDE + FORMOTEROL FUMARATE) [Concomitant]
  6. FOLIC ACID. [Concomitant]
     Active Substance: FOLIC ACID

REACTIONS (7)
  - Ventricular septal defect [None]
  - Foetal exposure during pregnancy [None]
  - Maternal drugs affecting foetus [None]
  - Atrial septal defect [None]
  - Aorta hypoplasia [None]
  - Patent ductus arteriosus [None]
  - Caesarean section [None]

NARRATIVE: CASE EVENT DATE: 20140426
